FAERS Safety Report 5001945-4 (Version None)
Quarter: 2006Q2

REPORT INFORMATION
  Report Type: 
  Country: None (occurrence: None)
  Receive Date: 20060515
  Receipt Date: 20060424
  Transmission Date: 20061013
  Serious: Yes (Other)
  Sender: FDA-Public Use
  Company Number: DE-SANOFI-SYNTHELABO-A04200600441

PATIENT
  Sex: Male
  Weight: 90 kg

DRUGS (5)
  1. PLAVIX [Suspect]
     Indication: ANGIOPLASTY
     Route: 048
     Dates: start: 20010101, end: 20010101
  2. PLAVIX [Suspect]
     Route: 048
     Dates: start: 20060101, end: 20060101
  3. XANEF [Concomitant]
     Indication: HYPERTENSION
     Dosage: UNK
     Route: 048
  4. VOLTAREN [Concomitant]
     Indication: OSTEOARTHRITIS
     Route: 048
  5. INSULIN [Concomitant]
     Indication: BLOOD GLUCOSE INCREASED
     Dosage: IF NECESSARY
     Route: 058

REACTIONS (2)
  - BRADYCARDIA [None]
  - NEURALGIA [None]
